FAERS Safety Report 6904049-6 (Version None)
Quarter: 2010Q3

REPORT INFORMATION
  Report Type: 
  Country: None (occurrence: None)
  Receive Date: 20100804
  Receipt Date: 20090305
  Transmission Date: 20110219
  Serious: No
  Sender: FDA-Public Use
  Company Number: US-PFIZER INC-2008157617

PATIENT
  Sex: Female
  Weight: 49.4 kg

DRUGS (5)
  1. LYRICA [Suspect]
     Indication: PAIN
     Dosage: UNK
     Dates: start: 20081017
  2. LYRICA [Suspect]
     Indication: FIBROMYALGIA
  3. LYRICA [Suspect]
     Indication: NEURALGIA
  4. CYMBALTA [Concomitant]
     Dosage: UNK
  5. HYZAAR [Concomitant]
     Dosage: UNK

REACTIONS (2)
  - HAIR DISORDER [None]
  - WEIGHT INCREASED [None]
